FAERS Safety Report 15221957 (Version 8)
Quarter: 2019Q1

REPORT INFORMATION
  Report Type: Report from Study
  Country: None (occurrence: BE)
  Receive Date: 20180731
  Receipt Date: 20190207
  Transmission Date: 20190417
  Serious: Yes (Hospitalization, Other)
  Sender: FDA-Public Use
  Company Number: BE-ABBVIE-18S-013-2434228-00

PATIENT
  Sex: Male

DRUGS (13)
  1. DUODOPA [Suspect]
     Active Substance: CARBIDOPA\LEVODOPA
     Dosage: DOSES CONTINUOUSLY MONITORED AND ADAPTED
     Route: 050
     Dates: start: 20130712, end: 20180705
  2. CLONAZEPAM. [Concomitant]
     Active Substance: CLONAZEPAM
     Indication: PRODUCT USED FOR UNKNOWN INDICATION
  3. DUODOPA [Suspect]
     Active Substance: CARBIDOPA\LEVODOPA
     Indication: PARKINSON^S DISEASE
     Dosage: MD=10ML??CD=4.1ML/HR DURING 16HRS ??ED=4ML
     Route: 050
     Dates: start: 20130527, end: 20130712
  4. ACETYLSALICYLIC ACID [Concomitant]
     Active Substance: ASPIRIN
  5. STALEVO [Concomitant]
     Active Substance: CARBIDOPA\ENTACAPONE\LEVODOPA
     Route: 048
  6. DUODOPA [Suspect]
     Active Substance: CARBIDOPA\LEVODOPA
     Route: 050
     Dates: start: 20180806
  7. STALEVO [Concomitant]
     Active Substance: CARBIDOPA\ENTACAPONE\LEVODOPA
     Indication: PARKINSON^S DISEASE
     Dosage: FORM STRENGTH: 100MG/25MG/200MG
     Route: 048
  8. DUODOPA [Suspect]
     Active Substance: CARBIDOPA\LEVODOPA
     Route: 050
     Dates: start: 20180731, end: 20180806
  9. ROPINIROL [Concomitant]
     Active Substance: ROPINIROLE
     Indication: PRODUCT USED FOR UNKNOWN INDICATION
  10. STALEVO [Concomitant]
     Active Substance: CARBIDOPA\ENTACAPONE\LEVODOPA
     Dosage: FORM STRENGTH: 100MG/25MG/200MG?5 TIME/DAY AS RESCUE MEDICATION
     Route: 048
  11. DUODOPA [Suspect]
     Active Substance: CARBIDOPA\LEVODOPA
     Dosage: MD=4ML??CD=4.3ML/HR DURING 16HRS ??ED=4ML
     Route: 050
     Dates: start: 20180705, end: 2018
  12. DUODOPA [Suspect]
     Active Substance: CARBIDOPA\LEVODOPA
     Dosage: MD=4ML??CD=5.1ML/HR DURING 16HRS ??ED=4ML
     Route: 050
     Dates: start: 2018, end: 2018
  13. ACETYLSALICYLIC ACID [Concomitant]
     Active Substance: ASPIRIN
     Indication: PRODUCT USED FOR UNKNOWN INDICATION

REACTIONS (17)
  - Stoma site discharge [Unknown]
  - Escherichia infection [Unknown]
  - Pyrexia [Unknown]
  - Movement disorder [Unknown]
  - Stoma site hypergranulation [Not Recovered/Not Resolved]
  - Abdominal infection [Unknown]
  - Stoma site haemorrhage [Unknown]
  - Dyskinesia [Not Recovered/Not Resolved]
  - Device damage [Not Recovered/Not Resolved]
  - Proteus infection [Unknown]
  - Staphylococcal infection [Unknown]
  - Inflammatory marker increased [Unknown]
  - Confusional state [Unknown]
  - Application site wound [Not Recovered/Not Resolved]
  - Purulence [Unknown]
  - Stoma site reaction [Unknown]
  - Device occlusion [Not Recovered/Not Resolved]
